FAERS Safety Report 4520286-2 (Version None)
Quarter: 2004Q4

REPORT INFORMATION
  Report Type: 
  Country: None (occurrence: None)
  Receive Date: 20041207
  Receipt Date: 20041129
  Transmission Date: 20050328
  Serious: Yes (Disabling)
  Sender: FDA-Public Use
  Company Number: PHHO2004IT16767

PATIENT
  Age: 63 Year
  Sex: Female
  Weight: 58 kg

DRUGS (1)
  1. TAMOXIFEN CITRATE [Suspect]
     Indication: BREAST CANCER
     Route: 048
     Dates: start: 20020625

REACTIONS (4)
  - RETINAL DETACHMENT [None]
  - RETINAL TEAR [None]
  - VITREOUS DETACHMENT [None]
  - VITREOUS FLOATERS [None]
